FAERS Safety Report 23791073 (Version 3)
Quarter: 2024Q3

REPORT INFORMATION
  Report Type: Report from Study
  Country: CA (occurrence: CA)
  Receive Date: 20240428
  Receipt Date: 20240823
  Transmission Date: 20241016
  Serious: Yes (Other)
  Sender: IPSEN
  Company Number: CA-IPSEN Group, Research and Development-2023-09124

PATIENT
  Age: 49 Year
  Sex: Male

DRUGS (4)
  1. LANREOTIDE ACETATE [Suspect]
     Active Substance: LANREOTIDE ACETATE
     Indication: Gastroenteropancreatic neuroendocrine tumour disease
     Route: 058
     Dates: start: 20230215
  2. LANREOTIDE ACETATE [Suspect]
     Active Substance: LANREOTIDE ACETATE
     Indication: Carcinoid syndrome
  3. PANTOPRAZOLE SODIUM [Concomitant]
     Active Substance: PANTOPRAZOLE SODIUM
  4. IRON [Concomitant]
     Active Substance: IRON

REACTIONS (4)
  - Bradycardia [Recovered/Resolved]
  - Hot flush [Recovered/Resolved]
  - Night sweats [Not Recovered/Not Resolved]
  - Helicobacter infection [Recovered/Resolved]

NARRATIVE: CASE EVENT DATE: 20230411
